FAERS Safety Report 10063979 (Version 3)
Quarter: 2014Q2

REPORT INFORMATION
  Report Type: Report from Study
  Country: US (occurrence: US)
  Receive Date: 20140408
  Receipt Date: 20140516
  Transmission Date: 20141212
  Serious: Yes (Other)
  Sender: FDA-Public Use
  Company Number: US-BIOGENIDEC-2014BI032766

PATIENT
  Age: 21 Year
  Sex: Male

DRUGS (4)
  1. TECFIDERA [Suspect]
     Indication: MULTIPLE SCLEROSIS
     Route: 048
     Dates: start: 20130801
  2. TECFIDERA [Suspect]
     Indication: MULTIPLE SCLEROSIS
     Route: 048
     Dates: start: 201311, end: 20140411
  3. VITAMIN D3 [Concomitant]
  4. VESICARE [Concomitant]

REACTIONS (15)
  - Relapsing-remitting multiple sclerosis [Not Recovered/Not Resolved]
  - Acute disseminated encephalomyelitis [Not Recovered/Not Resolved]
  - Balance disorder [Unknown]
  - Nausea [Unknown]
  - Paraesthesia [Unknown]
  - Nystagmus [Unknown]
  - Cerebellar syndrome [Unknown]
  - Coordination abnormal [Unknown]
  - Headache [Unknown]
  - Blindness [Unknown]
  - Fatigue [Unknown]
  - Gait disturbance [Unknown]
  - Bladder spasm [Unknown]
  - Multiple sclerosis relapse [Unknown]
  - Drug ineffective [Unknown]
